FAERS Safety Report 4743423-3 (Version None)
Quarter: 2005Q3

REPORT INFORMATION
  Report Type: 
  Country: None (occurrence: None)
  Receive Date: 20050812
  Receipt Date: 20050704
  Transmission Date: 20060218
  Serious: Yes (Death, Hospitalization)
  Sender: FDA-Public Use
  Company Number: AU-BOEHRINGER INGELHEIM PHARMACEUTICALS, INC.-2005-BP-11233AU

PATIENT
  Sex: Male

DRUGS (13)
  1. TIPRANAVIR / RITONAVIR CAPSULES, SOFTGELATIN [Suspect]
     Indication: HIV INFECTION
     Dosage: 1000/400 MG/MG
     Route: 048
     Dates: start: 20050701, end: 20050702
  2. LAMIVUDINE [Suspect]
     Indication: VIRAL INFECTION
     Route: 048
     Dates: start: 20050701, end: 20050702
  3. EFAVIRENZ [Suspect]
     Indication: VIRAL INFECTION
     Route: 048
     Dates: start: 20050701, end: 20050702
  4. ITRACONAZOLE [Suspect]
     Indication: FUNGAL INFECTION
     Route: 048
     Dates: start: 20050701, end: 20050702
  5. CARVEDILOL [Concomitant]
  6. TEMAZEPAM [Concomitant]
  7. AZITHROMYCIN [Concomitant]
  8. BACTRIM [Concomitant]
  9. CALTRATE [Concomitant]
  10. ASPIRIN [Concomitant]
  11. AMITRIPTYLINE [Concomitant]
  12. MORPHINE [Concomitant]
  13. VALGANCICLOVIR [Concomitant]

REACTIONS (8)
  - CARDIOMYOPATHY [None]
  - DISEASE RECURRENCE [None]
  - HEPATIC FAILURE [None]
  - HEPATIC FUNCTION ABNORMAL [None]
  - HYPOGLYCAEMIA [None]
  - MULTI-ORGAN FAILURE [None]
  - PANCREATITIS [None]
  - RENAL FAILURE CHRONIC [None]
